FAERS Safety Report 23361387 (Version 1)
Quarter: 2024Q1

REPORT INFORMATION
  Report Type: Spontaneous
  Country: US (occurrence: US)
  Receive Date: 20240103
  Receipt Date: 20240103
  Transmission Date: 20240409
  Serious: Yes (Other)
  Sender: FDA-Public Use
  Company Number: US-JNJFOC-20231272970

PATIENT
  Sex: Male

DRUGS (10)
  1. TYLENOL EXTRA STRENGTH [Suspect]
     Active Substance: ACETAMINOPHEN
     Indication: Pain
     Dosage: APPROXIMATELY 2-3 WEEKLY, SECOND TRIMESTER
     Route: 064
     Dates: start: 201002, end: 201004
  2. TYLENOL EXTRA STRENGTH [Suspect]
     Active Substance: ACETAMINOPHEN
     Indication: Headache
  3. TYLENOL [Suspect]
     Active Substance: ACETAMINOPHEN
     Indication: Migraine
     Route: 064
     Dates: start: 201002, end: 201004
  4. ACETAMINOPHEN [Suspect]
     Active Substance: ACETAMINOPHEN
     Indication: Pain
     Dosage: APPROXIMATELY 2-3 WEEKLY, SECOND TRIMESTER
     Route: 064
     Dates: start: 201002, end: 201004
  5. ACETAMINOPHEN [Suspect]
     Active Substance: ACETAMINOPHEN
     Indication: Headache
  6. KEFLEX [Concomitant]
     Active Substance: CEPHALEXIN
     Indication: Abscess
     Route: 064
     Dates: start: 201001, end: 201001
  7. PRENATAL PLUS [Concomitant]
     Active Substance: .ALPHA.-TOCOPHEROL ACETATE, DL-\.BETA.-CAROTENE\ASCORBIC ACID\CALCIUM CARBONATE\CHOLECALCIFEROL\CUPR
     Indication: Pregnancy
     Route: 064
     Dates: start: 201002, end: 201007
  8. PRENATAL PLUS [Concomitant]
     Active Substance: .ALPHA.-TOCOPHEROL ACETATE, DL-\.BETA.-CAROTENE\ASCORBIC ACID\CALCIUM CARBONATE\CHOLECALCIFEROL\CUPR
     Dosage: 1 MG/1 DAY
     Route: 064
     Dates: start: 201001, end: 201007
  9. ICAR-C PLUS [Concomitant]
     Indication: Pregnancy
     Route: 064
     Dates: start: 201002, end: 201007
  10. ICAR-C PLUS [Concomitant]
     Dosage: 1/DAY
     Route: 064
     Dates: start: 201001, end: 201007

REACTIONS (2)
  - Autism spectrum disorder [Unknown]
  - Foetal exposure during pregnancy [Unknown]

NARRATIVE: CASE EVENT DATE: 20100101
